FAERS Safety Report 23247427 (Version 1)
Quarter: 2023Q4

REPORT INFORMATION
  Report Type: Spontaneous
  Country: CN (occurrence: CN)
  Receive Date: 20231130
  Receipt Date: 20231130
  Transmission Date: 20240109
  Serious: Yes (Other)
  Sender: FDA-Public Use
  Company Number: None

PATIENT
  Age: 71 Year
  Sex: Male
  Weight: 57.3 kg

DRUGS (8)
  1. CYCLOPHOSPHAMIDE [Suspect]
     Active Substance: CYCLOPHOSPHAMIDE
     Indication: B-cell lymphoma
     Dosage: 1 G, ONE TIME IN ONE DAY, DILUTED WITH 250 ML OF SODIUM CHLORIDE
     Route: 041
     Dates: start: 20231106, end: 20231106
  2. SODIUM CHLORIDE [Suspect]
     Active Substance: SODIUM CHLORIDE
     Indication: Medication dilution
     Dosage: 750 ML, ONE TIME IN ONE DAY, USED TO DILUTE RITUXIMAB 600 MG
     Route: 041
     Dates: start: 20231106, end: 20231106
  3. SODIUM CHLORIDE [Suspect]
     Active Substance: SODIUM CHLORIDE
     Dosage: 250 ML, ONE TIME IN ONE DAY, USED TO DILUTE CYCLOPHOSPHAMIDE 1 G
     Route: 041
     Dates: start: 20231106, end: 20231106
  4. SODIUM CHLORIDE [Suspect]
     Active Substance: SODIUM CHLORIDE
     Dosage: 40 ML, ONE TIME IN ONE DAY, USED TO DILUTE VINDESINE SULFATE 4 MG
     Route: 040
     Dates: start: 20231106, end: 20231106
  5. DEXTROSE [Suspect]
     Active Substance: DEXTROSE\DEXTROSE MONOHYDRATE
     Indication: Medication dilution
     Dosage: (5%) 250 ML, ONE TIME IN ONE DAY, USED TO DILUTE DOXORUBICIN HYDROCHLORIDE LIPOSOME 40 MG
     Route: 041
     Dates: start: 20231106, end: 20231106
  6. RITUXIMAB [Suspect]
     Active Substance: RITUXIMAB
     Indication: B-cell lymphoma
     Dosage: 600 MG, ONE TIME IN ONE DAY, DILUTED WITH 750 ML OF SODIUM CHLORIDE
     Route: 041
     Dates: start: 20231106, end: 20231106
  7. VINDESINE SULFATE [Suspect]
     Active Substance: VINDESINE SULFATE
     Indication: B-cell lymphoma
     Dosage: 4 MG, ONE TIME IN ONE DAY, DILUTED WITH 40 ML OF SODIUM CHLORIDE
     Route: 040
     Dates: start: 20231106, end: 20231106
  8. DOXORUBICIN HYDROCHLORIDE [Suspect]
     Active Substance: DOXORUBICIN HYDROCHLORIDE
     Indication: B-cell lymphoma
     Dosage: 40 MG, ONE TIME IN ONE DAY, DILUTED WITH 250 ML OF 5% GLUCOSE
     Route: 041
     Dates: start: 20231106, end: 20231106

REACTIONS (2)
  - Myelosuppression [Recovering/Resolving]
  - Pyrexia [Recovering/Resolving]

NARRATIVE: CASE EVENT DATE: 20231116
